FAERS Safety Report 6078048-3 (Version None)
Quarter: 2009Q1

REPORT INFORMATION
  Report Type: 
  Country: None (occurrence: None)
  Receive Date: 20090213
  Receipt Date: 20090203
  Transmission Date: 20090719
  Serious: Yes (Life-Threatening)
  Sender: FDA-Public Use
  Company Number: FR-PFIZER INC-2009165834

PATIENT

DRUGS (10)
  1. TAHOR [Suspect]
     Dosage: 10 MG, UNK
     Route: 048
     Dates: end: 20080629
  2. SOLUPRED [Suspect]
     Dosage: UNK
     Route: 048
     Dates: end: 20080629
  3. ADANCOR [Suspect]
     Dosage: 10 MG, UNK
     Route: 048
     Dates: end: 20080629
  4. ATACAND [Suspect]
     Dosage: 16 MG, UNK
     Route: 048
     Dates: end: 20080629
  5. DOLIPRANE [Suspect]
     Dosage: UNK
     Route: 048
     Dates: end: 20080629
  6. SINTROM [Interacting]
     Dosage: UNK
     Route: 048
     Dates: start: 19940101, end: 20080629
  7. MICONAZOLE NITRATE [Suspect]
     Indication: OROPHARYNGEAL CANDIDIASIS
     Dosage: UNK
     Dates: start: 20080614, end: 20080629
  8. PROPRANOLOL [Concomitant]
     Dosage: 40 MG, UNK
  9. DIGOXIN [Concomitant]
     Dosage: 0.125 MG, UNK
  10. LEXOMIL [Concomitant]
     Dosage: 30 MG, UNK

REACTIONS (3)
  - ANAEMIA [None]
  - DRUG INTERACTION [None]
  - HAEMATOMA [None]
